FAERS Safety Report 5016095-0 (Version None)
Quarter: 2006Q2

REPORT INFORMATION
  Report Type: 
  Country: None (occurrence: None)
  Receive Date: 20060414
  Receipt Date: 20060304
  Transmission Date: 20061013
  Serious: No
  Sender: FDA-Public Use
  Company Number: 2006SP001081

PATIENT
  Age: 54 Year
  Sex: Female

DRUGS (3)
  1. LUNESTA [Suspect]
     Indication: INSOMNIA
     Dosage: HS;ORAL
     Route: 048
     Dates: start: 20060303
  2. ESTROGENS CONJUGATED [Concomitant]
  3. CALCIUM GLUCONATE [Concomitant]

REACTIONS (2)
  - MALAISE [None]
  - PARADOXICAL DRUG REACTION [None]
